FAERS Safety Report 9577244 (Version 1)
Quarter: 2013Q4

REPORT INFORMATION
  Report Type: Spontaneous
  Country: US (occurrence: US)
  Receive Date: 20131001
  Receipt Date: 20131001
  Transmission Date: 20140711
  Serious: No
  Sender: FDA-Public Use
  Company Number: US-AMGEN-USASP2013006745

PATIENT
  Sex: Female
  Weight: 70.3 kg

DRUGS (9)
  1. ENBREL [Suspect]
     Indication: RHEUMATOID ARTHRITIS
     Dosage: 50 MG, QWK
     Route: 058
  2. PANTOPRAZOLE [Concomitant]
     Dosage: 20 MG, UNK
  3. METHOTREXATE [Concomitant]
     Dosage: 2.5 MG, UNK
  4. METFORMIN [Concomitant]
     Dosage: 500 MG, UNK
  5. PAROXETINE [Concomitant]
     Dosage: 10 MG, UNK
  6. GLIPIZIDE [Concomitant]
     Dosage: 5 MG, UNK
  7. LEVOTHYROXIN [Concomitant]
     Dosage: 50 MUG, UNK
  8. LOSARTAN POTASSSIUM [Concomitant]
     Dosage: 25 MG, UNK
  9. FOLIC ACID [Concomitant]
     Dosage: UNK

REACTIONS (2)
  - Arthralgia [Unknown]
  - Feeling cold [Unknown]
